FAERS Safety Report 12569530 (Version 1)
Quarter: 2016Q3

REPORT INFORMATION
  Report Type: Spontaneous
  Country: US (occurrence: None)
  Receive Date: 20160718
  Receipt Date: 20160718
  Transmission Date: 20161109
  Serious: Yes (Hospitalization)
  Sender: FDA-Public Use
  Company Number: None

PATIENT
  Age: 24 Year
  Sex: Male
  Weight: 85 kg

DRUGS (4)
  1. IFOSFAMIDE. [Suspect]
     Active Substance: IFOSFAMIDE
     Dates: end: 20160522
  2. ETOPOSIDE (VP-16) [Suspect]
     Active Substance: ETOPOSIDE
     Dates: end: 20160629
  3. CARBOPLATIN. [Suspect]
     Active Substance: CARBOPLATIN
     Dates: end: 20160629
  4. TAXOL [Suspect]
     Active Substance: PACLITAXEL
     Dates: end: 20160520

REACTIONS (5)
  - Haemoglobin decreased [None]
  - Enteritis [None]
  - Colitis [None]
  - Platelet count decreased [None]
  - Febrile neutropenia [None]

NARRATIVE: CASE EVENT DATE: 20160707
